FAERS Safety Report 6898896-7 (Version None)
Quarter: 2010Q3

REPORT INFORMATION
  Report Type: 
  Country: None (occurrence: None)
  Receive Date: 20100802
  Receipt Date: 20080226
  Transmission Date: 20110219
  Serious: Yes (Other)
  Sender: FDA-Public Use
  Company Number: US-PFIZER INC-2007107779

PATIENT
  Age: 45 Year
  Sex: Male

DRUGS (5)
  1. LYRICA [Suspect]
     Dates: start: 20071212
  2. MORPHINE SULFATE [Concomitant]
  3. OXYCODONE HCL [Concomitant]
  4. SOMA [Concomitant]
  5. HYDROCHLOROTHIAZIDE [Concomitant]

REACTIONS (9)
  - ABDOMINAL PAIN [None]
  - COLD SWEAT [None]
  - DYSPNOEA [None]
  - HYPERHIDROSIS [None]
  - JOINT LOCK [None]
  - NAUSEA [None]
  - PAIN [None]
  - TREMOR [None]
  - VISUAL IMPAIRMENT [None]
